FAERS Safety Report 6479888-9 (Version None)
Quarter: 2009Q4

REPORT INFORMATION
  Report Type: 
  Country: None (occurrence: None)
  Receive Date: 20091208
  Receipt Date: 20091113
  Transmission Date: 20100525
  Serious: Yes (Congenital Anomaly)
  Sender: FDA-Public Use
  Company Number: US-SANOFI-AVENTIS-200917264US

PATIENT
  Age: 43 Year
  Sex: Female
  Weight: 111.36 kg

DRUGS (11)
  1. ENOXAPARIN SODIUM [Suspect]
     Indication: PULMONARY EMBOLISM
     Dosage: DOSE AS USED: UNK
     Dates: start: 20081216, end: 20090701
  2. ENOXAPARIN SODIUM [Suspect]
     Indication: MULTIPLE SCLEROSIS
     Dosage: DOSE AS USED: UNK
     Dates: start: 20081216, end: 20090701
  3. REBIF /SWE/ [Suspect]
     Indication: MULTIPLE SCLEROSIS
     Route: 058
     Dates: start: 20080826, end: 20081126
  4. FLEXERIL [Suspect]
     Indication: MUSCLE SPASMS
     Dosage: DOSE AS USED: 10 MG 3-4X PER DAY
  5. DROSPIRENONE AND EHTINYL ESTRADIOL [Suspect]
     Dosage: DOSE AS USED: UNK
     Dates: start: 20080601, end: 20081201
  6. CYMBALTA [Concomitant]
     Indication: DEPRESSION
     Dosage: DOSE AS USED: UNK
     Dates: end: 20081126
  7. NAPROSYN [Concomitant]
     Dates: end: 20081126
  8. FISH OIL [Concomitant]
     Dosage: DOSE AS USED: 6-100 MG
     Route: 048
     Dates: end: 20081126
  9. NORCO [Concomitant]
     Indication: PAIN
     Dates: end: 20081126
  10. NORCO [Concomitant]
     Dates: end: 20081126
  11. BACTRIM [Concomitant]
     Indication: URINARY TRACT INFECTION
     Dosage: DOSE AS USED: UNK
     Dates: start: 20081001

REACTIONS (6)
  - ABORTION INDUCED [None]
  - DRUG EXPOSURE DURING PREGNANCY [None]
  - HYDROCEPHALUS [None]
  - MENINGOMYELOCELE [None]
  - NEURAL TUBE DEFECT [None]
  - TALIPES [None]
